FAERS Safety Report 14612432 (Version 1)
Quarter: 2018Q1

REPORT INFORMATION
  Report Type: Spontaneous
  Country: KR (occurrence: KR)
  Receive Date: 20180308
  Receipt Date: 20180308
  Transmission Date: 20180509
  Serious: Yes (Hospitalization, Other)
  Sender: FDA-Public Use
  Company Number: KR-SA-2018SA060188

PATIENT
  Sex: Male

DRUGS (2)
  1. LANTUS [Suspect]
     Active Substance: INSULIN GLARGINE
     Indication: DIABETES MELLITUS
     Route: 058
     Dates: start: 2005, end: 201802
  2. SOLOSTAR [Suspect]
     Active Substance: DEVICE
     Dates: start: 2005, end: 201802

REACTIONS (2)
  - Cerebral infarction [Recovered/Resolved]
  - Coronary artery bypass [Recovered/Resolved]

NARRATIVE: CASE EVENT DATE: 2005
